FAERS Safety Report 20501919 (Version 5)
Quarter: 2022Q2

REPORT INFORMATION
  Report Type: Report from Study
  Country: FR (occurrence: None)
  Receive Date: 20220222
  Receipt Date: 20220428
  Transmission Date: 20220720
  Serious: Yes (Life-Threatening, Hospitalization)
  Sender: FDA-Public Use
  Company Number: FR-ROCHE-3024317

PATIENT
  Age: 68 Year
  Sex: Male
  Weight: 64.8 kg

DRUGS (10)
  1. ATEZOLIZUMAB [Suspect]
     Active Substance: ATEZOLIZUMAB
     Indication: Malignant neoplasm of unknown primary site
     Dosage: 18/JAN/2022: LAST DOSE PRIOR TO SAE.
     Route: 041
     Dates: start: 20211208
  2. CARBOPLATIN [Suspect]
     Active Substance: CARBOPLATIN
     Indication: Malignant neoplasm of unknown primary site
     Dosage: 09/NOV/2021,  08/DEC/2021, 18/JAN/2022 :DATE OF LAST DOSE OF CARBOPLATIN?INDUCTION PHASE
     Route: 042
     Dates: start: 20210928
  3. CARBOPLATIN [Suspect]
     Active Substance: CARBOPLATIN
     Dosage: TREATMENT STUDY PHASE: 18/JAN/2022
     Route: 042
     Dates: start: 20211208, end: 20211228
  4. PACLITAXEL [Suspect]
     Active Substance: PACLITAXEL
     Indication: Malignant neoplasm of unknown primary site
     Dosage: 09/NOV/2021, 08/DEC/2021, 18/JAN/2022:LAST DOSE OF PACLITAXEL?INDUCTION PHASE
     Route: 042
     Dates: start: 20210928, end: 20211109
  5. PACLITAXEL [Suspect]
     Active Substance: PACLITAXEL
     Dosage: LAST DOSE OF TREATMENT DRUG: 18/JAN/2022
     Route: 042
     Dates: start: 20211208, end: 20211228
  6. TRAMADOL [Concomitant]
     Active Substance: TRAMADOL
     Route: 048
  7. SKENAN [Concomitant]
     Active Substance: MORPHINE SULFATE
  8. MORPHINE SULFATE [Concomitant]
     Active Substance: MORPHINE SULFATE
     Route: 048
  9. ACETAMINOPHEN [Concomitant]
     Active Substance: ACETAMINOPHEN
     Route: 048
  10. XGEVA [Concomitant]
     Active Substance: DENOSUMAB
     Route: 048

REACTIONS (1)
  - Cardiac tamponade [Recovered/Resolved with Sequelae]

NARRATIVE: CASE EVENT DATE: 20220203
